FAERS Safety Report 4635765-7 (Version None)
Quarter: 2005Q2

REPORT INFORMATION
  Report Type: 
  Country: None (occurrence: None)
  Receive Date: 20050414
  Receipt Date: 20050404
  Transmission Date: 20051028
  Serious: Yes (Other)
  Sender: FDA-Public Use
  Company Number: CIP05000773

PATIENT
  Age: 48 Year
  Sex: Female

DRUGS (2)
  1. ACTONEL [Suspect]
     Indication: OSTEOPOROSIS
     Dosage: 5 MG DAILY, ORAL
     Route: 048
     Dates: start: 20050101, end: 20050228
  2. ASSOGEN (CLORICROMEN HYDROCHLORIDE) [Concomitant]

REACTIONS (5)
  - BONE PAIN [None]
  - JOINT STIFFNESS [None]
  - MOBILITY DECREASED [None]
  - SENSATION OF HEAVINESS [None]
  - WEIGHT INCREASED [None]
